FAERS Safety Report 26192986 (Version 1)
Quarter: 2025Q4

REPORT INFORMATION
  Report Type: Spontaneous
  Country: US (occurrence: US)
  Receive Date: 20251223
  Receipt Date: 20251223
  Transmission Date: 20260117
  Serious: Yes (Other)
  Sender: GILEAD
  Company Number: US-GILEAD-2025-0742162

PATIENT
  Age: 5 Decade
  Sex: Male

DRUGS (2)
  1. YEZTUGO [Suspect]
     Active Substance: LENACAPAVIR SODIUM
     Indication: Prophylaxis against HIV infection
     Dosage: UNK
     Route: 065
     Dates: start: 20251217
  2. YEZTUGO [Suspect]
     Active Substance: LENACAPAVIR SODIUM
     Indication: Prophylaxis against HIV infection
     Dosage: UNK
     Route: 065
     Dates: start: 20251217

REACTIONS (5)
  - Injection site cellulitis [Unknown]
  - Injection site erythema [Not Recovered/Not Resolved]
  - Injection site pruritus [Unknown]
  - Injection site pain [Unknown]
  - Injection site induration [Not Recovered/Not Resolved]

NARRATIVE: CASE EVENT DATE: 20251220
